FAERS Safety Report 17285036 (Version 1)
Quarter: 2020Q1

REPORT INFORMATION
  Report Type: Spontaneous
  Country: US (occurrence: US)
  Receive Date: 20200117
  Receipt Date: 20200117
  Transmission Date: 20200409
  Serious: No
  Sender: FDA-Public Use
  Company Number: US-ACTELION-A-NJ2020-200386

PATIENT
  Sex: Female
  Weight: 47.62 kg

DRUGS (1)
  1. VELETRI [Suspect]
     Active Substance: EPOPROSTENOL
     Indication: PULMONARY ARTERIAL HYPERTENSION
     Dosage: 36 NG/KG
     Route: 042

REACTIONS (3)
  - Memory impairment [Unknown]
  - Product dose omission [Unknown]
  - Fatigue [Unknown]
